FAERS Safety Report 9506946 (Version 1)
Quarter: 2013Q1

REPORT INFORMATION
  Report Type: Spontaneous
  Country: US (occurrence: None)
  Receive Date: 20130305
  Receipt Date: 20130305
  Transmission Date: 20140127
  Serious: Yes (Other)
  Sender: FDA-Public Use
  Company Number: 163-21880-12051367

PATIENT
  Age: 64 Year
  Sex: Female

DRUGS (13)
  1. REVLIMID [Suspect]
     Indication: PLASMA CELL MYELOMA
     Dosage: 5 MG, 1 IN 1 D, PO
     Route: 048
     Dates: start: 20120206, end: 20120503
  2. ACYCLOVIR (ACICLOVIR) (200 MILLIGRAM, CAPSULES) [Concomitant]
  3. DECADRON [Concomitant]
  4. DIALYVITE (DIALYVITE) (UNKNOWN) [Concomitant]
  5. KYTRIL (GRANISETRON) (UNKNOWN) [Concomitant]
  6. METOPROLOL SUCCINATE (METOPROLOL SUCCINATE) (25 MILLIGRAM, TABLETS) [Concomitant]
  7. COMPAZINE (PROCHLORPERAZINE EDISYLATGE) (UNKNOWN) [Concomitant]
  8. PROCRIT [Concomitant]
  9. PROTONIX (20 MILLIGRAM, TABLETS) [Concomitant]
  10. RENAGEL (SEVELAMER HYDROCHLORIDE) (800 MILLIGRAM, TABLETS) [Concomitant]
  11. VELCADE [Concomitant]
  12. LORAZEPAM (LORAZEPAM) (0.5 MILLIGRAM, TABLETS) [Concomitant]
  13. MARINOL (DRONABINOL) (2.5 MILLIGRAM, CAPSULES) [Concomitant]

REACTIONS (4)
  - Thrombocytopenia [None]
  - Nausea [None]
  - Diarrhoea [None]
  - Decreased appetite [None]
